FAERS Safety Report 4362576-2 (Version None)
Quarter: 2004Q2

REPORT INFORMATION
  Report Type: 
  Country: None (occurrence: None)
  Receive Date: 20040520
  Receipt Date: 20040507
  Transmission Date: 20050107
  Serious: Yes (Other)
  Sender: FDA-Public Use
  Company Number: US-JNJFOC-20040501366

PATIENT
  Age: 78 Year
  Sex: Female
  Weight: 58.9676 kg

DRUGS (8)
  1. INFLIXIMAB (INFLIXIMAB, RECOMBINANT) LYOPHILIZED POWDER [Suspect]
     Indication: RHEUMATOID ARTHRITIS
     Dosage: 500 MG, INTRAVENOUS
     Route: 042
     Dates: start: 20010516
  2. METHOTREXATE [Concomitant]
  3. FOSAMAX [Concomitant]
  4. ZOCOR [Concomitant]
  5. FOLIC ACID [Concomitant]
  6. TYLENOL [Concomitant]
  7. CALCIUM (CALCIUM) [Concomitant]
  8. ZOLOFT [Concomitant]

REACTIONS (1)
  - BASAL CELL CARCINOMA [None]
